FAERS Safety Report 10196943 (Version 1)
Quarter: 2014Q2

REPORT INFORMATION
  Report Type: Spontaneous
  Country: GB (occurrence: GB)
  Receive Date: 20140527
  Receipt Date: 20140527
  Transmission Date: 20141212
  Serious: Yes (Other)
  Sender: FDA-Public Use
  Company Number: GB-WATSON-2014-10643

PATIENT
  Age: 18 Year
  Sex: Female

DRUGS (1)
  1. PROPRANOLOL (UNKNOWN) [Suspect]
     Indication: ANXIETY
     Dosage: 10 MG, DAILY
     Route: 048
     Dates: start: 20131022, end: 20140501

REACTIONS (1)
  - Thrombocytopenia [Not Recovered/Not Resolved]
